FAERS Safety Report 12837475 (Version 1)
Quarter: 2016Q4

REPORT INFORMATION
  Report Type: Spontaneous
  Country: UA (occurrence: UA)
  Receive Date: 20161011
  Receipt Date: 20161011
  Transmission Date: 20170207
  Serious: No
  Sender: FDA-Public Use
  Company Number: UA-LUPIN PHARMACEUTICALS INC.-2016-02136

PATIENT
  Sex: 0

DRUGS (4)
  1. CEFANTRAL 1G [Suspect]
     Active Substance: CEFOTAXIME SODIUM
     Indication: GASTROINTESTINAL DISORDER
  2. CEFANTRAL 1G [Suspect]
     Active Substance: CEFOTAXIME SODIUM
     Indication: PRODUCT USED FOR UNKNOWN INDICATION
     Route: 042
     Dates: end: 20160515
  3. CEFANTRAL 1G [Suspect]
     Active Substance: CEFOTAXIME SODIUM
     Indication: VIRAL INFECTION
  4. CEFANTRAL 1G [Suspect]
     Active Substance: CEFOTAXIME SODIUM
     Indication: BRONCHITIS

REACTIONS (2)
  - Tremor [None]
  - Tremor [Recovered/Resolved]

NARRATIVE: CASE EVENT DATE: 20160515
